FAERS Safety Report 21579721 (Version 1)
Quarter: 2022Q4

REPORT INFORMATION
  Report Type: Report from Study
  Country: US (occurrence: US)
  Receive Date: 20221110
  Receipt Date: 20221110
  Transmission Date: 20230113
  Serious: Yes (Hospitalization, Other)
  Sender: FDA-Public Use
  Company Number: US-JAZZ-2022-US-034668

PATIENT
  Age: 52 Year
  Sex: Female
  Weight: 133 kg

DRUGS (35)
  1. LURBINECTEDIN [Suspect]
     Active Substance: LURBINECTEDIN
     Indication: Small cell lung cancer
     Dosage: 6.4 MILLIGRAM, Q21 DAYS
     Route: 042
     Dates: start: 20220812
  2. LURBINECTEDIN [Suspect]
     Active Substance: LURBINECTEDIN
     Dosage: 6.4 MILLIGRAM, Q21 DAYS
     Route: 042
     Dates: start: 20221014
  3. TOUJEO [Concomitant]
     Active Substance: INSULIN GLARGINE
     Dosage: 30 INTERNATIONAL UNIT, QD
     Route: 058
     Dates: start: 20220920
  4. BUMETANIDE [Concomitant]
     Active Substance: BUMETANIDE
     Dosage: 6 MILLIGRAM, QD
     Route: 048
     Dates: start: 20220829
  5. ROPINIROLE [Concomitant]
     Active Substance: ROPINIROLE
     Dosage: 1 MILLIGRAM, PM
     Route: 048
  6. ARIPIPRAZOLE [Concomitant]
     Active Substance: ARIPIPRAZOLE
     Dosage: 5 MILLIGRAM, QD
     Route: 048
     Dates: start: 20201112
  7. MONTELUKAST [Concomitant]
     Active Substance: MONTELUKAST SODIUM
     Dosage: 10 MILLIGRAM, QD
     Route: 048
     Dates: start: 20200901
  8. HYDROMORPHONE [Concomitant]
     Active Substance: HYDROMORPHONE
     Dosage: 8 MILLIGRAM, Q6H PRN
     Dates: start: 20140926
  9. DICLOFENAC [Concomitant]
     Active Substance: DICLOFENAC
     Dosage: 2 GRAM, PRN
     Route: 061
     Dates: start: 20161006
  10. ROSUVASTATIN [Concomitant]
     Active Substance: ROSUVASTATIN
     Dosage: 20 MILLIGRAM, QD
     Route: 048
     Dates: start: 20161006
  11. ACETAMINOPHEN [Concomitant]
     Active Substance: ACETAMINOPHEN
     Dosage: 500 MILLIGRAM, QD, PRN
     Route: 048
     Dates: start: 20200702
  12. ALPRAZOLAM [Concomitant]
     Active Substance: ALPRAZOLAM
     Dosage: 2 MILLIGRAM, BID, PRN
     Route: 048
     Dates: start: 20200702
  13. SPIRONOLACTONE [Concomitant]
     Active Substance: SPIRONOLACTONE
     Dosage: 50 MILLIGRAM, QD
     Route: 048
     Dates: start: 20200901
  14. PANTOPRAZOLE [Concomitant]
     Active Substance: PANTOPRAZOLE
     Dosage: 40 MILLIGRAM, BID
     Route: 048
     Dates: start: 20200702
  15. TOPIRAMATE [Concomitant]
     Active Substance: TOPIRAMATE
     Dosage: 25 MILLIGRAM, QD
     Route: 048
     Dates: start: 20200901
  16. ALLOPURINOL [Concomitant]
     Active Substance: ALLOPURINOL
     Dosage: 300 MILLIGRAM, QD
     Route: 048
     Dates: start: 20200901
  17. SUCRALFATE [Concomitant]
     Active Substance: SUCRALFATE
     Dosage: 1 GRAM, QD
     Dates: start: 20200901
  18. INSULIN GLARGINE [Concomitant]
     Active Substance: INSULIN GLARGINE
     Dosage: 30 INTERNATIONAL UNIT, QD
     Route: 058
     Dates: start: 20211021
  19. NOVOLOG [Concomitant]
     Active Substance: INSULIN ASPART
     Dosage: 30 INTERNATIONAL UNIT, QD
     Route: 058
     Dates: start: 20220303
  20. SEMAGLUTIDE [Concomitant]
     Active Substance: SEMAGLUTIDE
     Dosage: 1 MILLIGRAM, QW
     Route: 058
     Dates: start: 20220524
  21. FARXIGA [Concomitant]
     Active Substance: DAPAGLIFLOZIN PROPANEDIOL
     Dosage: 10 MILLIGRAM, QD
     Route: 048
     Dates: start: 20220708
  22. PREGABALIN [Concomitant]
     Active Substance: PREGABALIN
     Dosage: 150 MILLIGRAM, BID
     Route: 048
     Dates: start: 20220708
  23. BUDESONIDE [Concomitant]
     Active Substance: BUDESONIDE
     Dosage: 3 MILLIGRAM, QD
     Route: 048
     Dates: start: 20220721
  24. CHOLECALCIFEROL [Concomitant]
     Active Substance: CHOLECALCIFEROL
     Dosage: 1250 MICROGRAM, QW
     Route: 048
  25. DULOXETINE [Concomitant]
     Active Substance: DULOXETINE
     Dosage: 30 MILLIGRAM, QD
     Route: 048
     Dates: start: 20160907
  26. FERROUS SULFATE [Concomitant]
     Active Substance: FERROUS SULFATE
     Dosage: 325 MILLIGRAM, QD
     Route: 048
     Dates: start: 20220411
  27. ALLEGRA ALLERGY [Concomitant]
     Active Substance: FEXOFENADINE HYDROCHLORIDE
     Dosage: 10 MILLIGRAM, QD
     Route: 048
     Dates: start: 20200701
  28. HYDROXYCHLOROQUINE [Concomitant]
     Active Substance: HYDROXYCHLOROQUINE
     Dosage: 200 MILLIGRAM, QD
     Route: 048
  29. ISOSORBIDE MONONITRATE [Concomitant]
     Active Substance: ISOSORBIDE MONONITRATE
     Dosage: 30 MILLIGRAM, BID
     Route: 048
  30. LEVOTHYROXINE [Concomitant]
     Active Substance: LEVOTHYROXINE
     Dosage: 100 MICROGRAM, QD
     Route: 048
  31. LIDOCAINE [Concomitant]
     Active Substance: LIDOCAINE
     Dosage: 5% TOPICAL PATCH DAILY
     Route: 061
  32. OLANZAPINE [Concomitant]
     Active Substance: OLANZAPINE
     Dosage: 2.5 MILLIGRAM, QD
     Route: 048
     Dates: start: 20220928
  33. POTASSIUM CHLORIDE [Concomitant]
     Active Substance: POTASSIUM CHLORIDE
     Dosage: 10 MILLIEQUIVALENT, QD
     Route: 048
     Dates: start: 20220523
  34. SERTRALINE HYDROCHLORIDE [Concomitant]
     Active Substance: SERTRALINE HYDROCHLORIDE
     Dosage: 50 MILLIGRAM, QD
     Route: 048
     Dates: start: 20221031
  35. VILAZODONE [Concomitant]
     Active Substance: VILAZODONE
     Dosage: 40 MILLIGRAM, QD
     Route: 048
     Dates: start: 20160907

REACTIONS (2)
  - Cellulitis [Not Recovered/Not Resolved]
  - Administration site extravasation [Recovered/Resolved]

NARRATIVE: CASE EVENT DATE: 20220902
